FAERS Safety Report 14390256 (Version 1)
Quarter: 2018Q1

REPORT INFORMATION
  Report Type: Report from Study
  Country: None (occurrence: DE)
  Receive Date: 20180116
  Receipt Date: 20180116
  Transmission Date: 20180509
  Serious: Yes (Hospitalization)
  Sender: FDA-Public Use
  Company Number: DE-ABBVIE-18K-062-2223547-00

PATIENT
  Sex: Male

DRUGS (1)
  1. DUODOPA [Suspect]
     Active Substance: CARBIDOPA\LEVODOPA
     Indication: PARKINSON^S DISEASE
     Dosage: MD: 4.5ML, CRD: 2.1ML/H, ED: 1ML
     Route: 050
     Dates: start: 20160627

REACTIONS (2)
  - General physical health deterioration [Not Recovered/Not Resolved]
  - Parkinson^s disease [Not Recovered/Not Resolved]
